FAERS Safety Report 9360596 (Version 6)
Quarter: 2014Q3

REPORT INFORMATION
  Report Type: Spontaneous
  Country: US (occurrence: US)
  Receive Date: 20130621
  Receipt Date: 20140813
  Transmission Date: 20150326
  Serious: Yes (Other)
  Sender: FDA-Public Use
  Company Number: US-BAYER-2013-073915

PATIENT
  Age: 22 Year
  Sex: Female
  Weight: 75 kg

DRUGS (1)
  1. MIRENA [Suspect]
     Active Substance: LEVONORGESTREL
     Indication: CONTRACEPTION
     Dosage: 20 MCG/24HR, CONT
     Route: 015
     Dates: start: 20100325, end: 20120625

REACTIONS (10)
  - Device dislocation [None]
  - Abortion spontaneous [None]
  - Device issue [None]
  - Injury [None]
  - Abdominal pain lower [None]
  - Uterine perforation [None]
  - Off label use [None]
  - Pregnancy with contraceptive device [None]
  - Emotional distress [None]
  - Drug ineffective [None]

NARRATIVE: CASE EVENT DATE: 201004
